FAERS Safety Report 6586260-X (Version None)
Quarter: 2010Q1

REPORT INFORMATION
  Report Type: 
  Country: None (occurrence: None)
  Receive Date: 20100217
  Receipt Date: 20090303
  Transmission Date: 20100710
  Serious: Yes (Other)
  Sender: FDA-Public Use
  Company Number: US-ALLERGAN-0901072US

PATIENT
  Age: 25 Year
  Sex: Female
  Weight: 95.238 kg

DRUGS (8)
  1. BOTOX [Suspect]
     Indication: MUSCLE SPASTICITY
     Dosage: 400 UNITS, SINGLE
     Route: 030
     Dates: start: 20081216, end: 20081216
  2. GABAPENTIN [Concomitant]
     Indication: PAIN
     Dosage: 300 MG, TID
     Route: 048
  3. CITALOPRAM HYDROBROMIDE [Concomitant]
     Indication: DEPRESSION
     Dosage: 40 MG, QAM
  4. BACLOFEN [Concomitant]
  5. OMEPRAZOLE [Concomitant]
     Indication: GASTROOESOPHAGEAL REFLUX DISEASE
     Dosage: 20 MG, PRN
  6. DETROL LA [Concomitant]
     Indication: URINARY INCONTINENCE
     Dosage: 2 MG, QHS
  7. BUPROPION [Concomitant]
     Indication: DEPRESSION
     Dosage: 150 MG, BID
     Route: 048
  8. NORTRIPTYLINE HCL [Concomitant]
     Indication: NEURALGIA
     Dosage: 75 MG, QHS

REACTIONS (1)
  - HEMIPARESIS [None]
